FAERS Safety Report 11415504 (Version 2)
Quarter: 2015Q4

REPORT INFORMATION
  Report Type: Spontaneous
  Country: JP (occurrence: JP)
  Receive Date: 20150825
  Receipt Date: 20151201
  Transmission Date: 20160304
  Serious: No
  Sender: FDA-Public Use
  Company Number: JP-ELI_LILLY_AND_COMPANY-JP201507010986

PATIENT
  Age: 48 Year
  Sex: Female
  Weight: 31 kg

DRUGS (3)
  1. CARBOPLATIN. [Suspect]
     Active Substance: CARBOPLATIN
     Indication: PLEURAL MESOTHELIOMA MALIGNANT
     Dosage: 450 MG, UNK
     Route: 042
     Dates: start: 20150216, end: 20150729
  2. ALIMTA [Suspect]
     Active Substance: PEMETREXED DISODIUM
     Indication: PLEURAL MESOTHELIOMA MALIGNANT
     Dosage: 600 MG, UNK
     Route: 042
     Dates: start: 20150216, end: 20150729
  3. PANVITAN                           /05664401/ [Concomitant]
     Indication: PROPHYLAXIS
     Dosage: 1 G, UNK
     Route: 048
     Dates: start: 20150205

REACTIONS (3)
  - Neutrophil count decreased [Recovered/Resolved]
  - Anaphylactic shock [Recovered/Resolved]
  - Off label use [Recovered/Resolved]

NARRATIVE: CASE EVENT DATE: 20150216
